FAERS Safety Report 10632242 (Version 1)
Quarter: 2014Q4

REPORT INFORMATION
  Report Type: Spontaneous
  Country: US (occurrence: US)
  Receive Date: 20141205
  Receipt Date: 20141205
  Transmission Date: 20150529
  Serious: No
  Sender: FDA-Public Use
  Company Number: US-BRISTOL-MYERS SQUIBB COMPANY-21607387

PATIENT
  Age: 59 Year
  Sex: Female

DRUGS (14)
  1. HYDRALAZINE [Concomitant]
     Active Substance: HYDRALAZINE HYDROCHLORIDE
  2. PROTONIX [Concomitant]
     Active Substance: PANTOPRAZOLE SODIUM
  3. VITAMIN D3 [Concomitant]
     Active Substance: CHOLECALCIFEROL
  4. ABILIFY [Suspect]
     Active Substance: ARIPIPRAZOLE
     Route: 048
  5. TYLENOL [Concomitant]
     Active Substance: ACETAMINOPHEN
  6. MIRAPEX [Concomitant]
     Active Substance: PRAMIPEXOLE DIHYDROCHLORIDE
  7. TRICOR [Concomitant]
     Active Substance: FENOFIBRATE
  8. NEURONTIN [Concomitant]
     Active Substance: GABAPENTIN
  9. MAG-OX [Concomitant]
  10. NORVASC [Concomitant]
     Active Substance: AMLODIPINE BESYLATE
  11. LOPRESSOR [Concomitant]
     Active Substance: METOPROLOL TARTRATE
  12. ZOCOR [Concomitant]
     Active Substance: SIMVASTATIN
  13. ZANAFLEX [Concomitant]
     Active Substance: TIZANIDINE HYDROCHLORIDE
  14. LANTUS [Concomitant]
     Active Substance: INSULIN GLARGINE

REACTIONS (4)
  - Anxiety [Unknown]
  - Insomnia [Unknown]
  - Crying [Unknown]
  - Tooth extraction [Unknown]
